FAERS Safety Report 18526435 (Version 1)
Quarter: 2020Q4

REPORT INFORMATION
  Report Type: Spontaneous
  Country: US (occurrence: US)
  Receive Date: 20201120
  Receipt Date: 20201120
  Transmission Date: 20210114
  Serious: No
  Sender: FDA-Public Use
  Company Number: US-ELI_LILLY_AND_COMPANY-US202011008617

PATIENT
  Sex: Female

DRUGS (2)
  1. CYMBALTA [Suspect]
     Active Substance: DULOXETINE HYDROCHLORIDE
     Indication: FIBROMYALGIA
     Dosage: 20 MG, UNKNOWN
     Route: 065
     Dates: start: 20201117
  2. CYMBALTA [Suspect]
     Active Substance: DULOXETINE HYDROCHLORIDE
     Indication: MENISCUS INJURY

REACTIONS (6)
  - Wrong technique in product usage process [Unknown]
  - Nervousness [Unknown]
  - Drug hypersensitivity [Unknown]
  - Off label use [Unknown]
  - Malaise [Unknown]
  - Feeling jittery [Unknown]
